FAERS Safety Report 7383103-1 (Version None)
Quarter: 2011Q1

REPORT INFORMATION
  Report Type: 
  Country: None (occurrence: None)
  Receive Date: 20110330
  Receipt Date: 20110322
  Transmission Date: 20110831
  Serious: No
  Sender: FDA-Public Use
  Company Number: US-PFIZER INC-2010058243

PATIENT
  Sex: Male
  Weight: 86 kg

DRUGS (9)
  1. LOVASTATIN [Interacting]
     Indication: BLOOD CHOLESTEROL INCREASED
     Dosage: 40 MG, 2X/DAY
     Route: 048
     Dates: start: 20050101
  2. ZETIA [Interacting]
     Dosage: 10 MG PILL CUTTING IN HALF 5MG DAILY
     Dates: start: 20070101
  3. WARFARIN SODIUM [Interacting]
     Indication: THROMBOSIS
     Dosage: 10 MG, 1X/DAY WITH 11MG ON MONDAY AND THURSDAY
     Dates: start: 20000101
  4. TOPROL-XL [Interacting]
     Indication: HYPERTENSION
     Dosage: 50 MG, 1X/DAY
     Dates: start: 20040101
  5. GLUCOPHAGE XR [Interacting]
     Indication: DIABETES MELLITUS
     Dosage: 500 MG, 2X/DAY
     Dates: start: 20030101
  6. TORSEMIDE [Interacting]
     Indication: FLUID RETENTION
     Dosage: 20 MG PILL IN HALF 10MG DAILY
     Route: 048
  7. COZAAR [Interacting]
     Indication: HYPERTENSION
     Dosage: 50 MG, 1X/DAY
     Route: 048
     Dates: start: 20000101
  8. NIFEDIPINE [Suspect]
     Dosage: 60 MG, 1X/DAY
     Dates: start: 20100401
  9. PROTONIX [Interacting]
     Indication: GASTROOESOPHAGEAL REFLUX DISEASE
     Dosage: 40 MG, 1X/DAY
     Dates: start: 20070101

REACTIONS (2)
  - DRUG INTERACTION [None]
  - DIZZINESS POSTURAL [None]
